FAERS Safety Report 5895506-2 (Version None)
Quarter: 2008Q3

REPORT INFORMATION
  Report Type: 
  Country: None (occurrence: None)
  Receive Date: 20080924
  Receipt Date: 20080918
  Transmission Date: 20090109
  Serious: Yes (Life-Threatening, Hospitalization, Other)
  Sender: FDA-Public Use
  Company Number: US-CELGENEUS-163-21880-08041909

PATIENT
  Sex: Male

DRUGS (14)
  1. REVLIMID [Suspect]
     Indication: CHRONIC LYMPHOCYTIC LEUKAEMIA
     Route: 048
     Dates: start: 20080211, end: 20080401
  2. REVLIMID [Suspect]
     Route: 048
     Dates: start: 20080201, end: 20080201
  3. REVLIMID [Suspect]
     Route: 048
     Dates: start: 20071227, end: 20080101
  4. REVLIMID [Suspect]
     Route: 048
     Dates: start: 20071217, end: 20071201
  5. REVLIMID [Suspect]
     Route: 048
     Dates: start: 20071001, end: 20071201
  6. FERROUS SULFATE TAB [Concomitant]
     Indication: ANAEMIA
     Route: 065
     Dates: start: 20040501
  7. FOLIC ACID [Concomitant]
     Indication: ANAEMIA
     Route: 065
     Dates: start: 20040401
  8. ASCORBIC ACID [Concomitant]
     Indication: DRUG USE FOR UNKNOWN INDICATION
     Route: 065
     Dates: start: 20040401
  9. CALCIUM GLUCONATE [Concomitant]
     Indication: DRUG USE FOR UNKNOWN INDICATION
     Route: 065
     Dates: start: 20050601
  10. DIGESTIVE ENZYME [Concomitant]
     Indication: DRUG USE FOR UNKNOWN INDICATION
     Route: 065
     Dates: start: 20040101
  11. SENNA [Concomitant]
     Indication: DRUG USE FOR UNKNOWN INDICATION
     Route: 065
     Dates: start: 20071101
  12. VITAMIN B COMPLEX CAP [Concomitant]
     Indication: DRUG USE FOR UNKNOWN INDICATION
     Route: 065
     Dates: start: 20051001
  13. GLYBURIDE [Concomitant]
     Indication: DRUG USE FOR UNKNOWN INDICATION
     Route: 065
     Dates: start: 20071101
  14. BACTRIM DS [Concomitant]
     Indication: DRUG USE FOR UNKNOWN INDICATION
     Route: 065
     Dates: start: 20080114

REACTIONS (7)
  - ACUTE RESPIRATORY FAILURE [None]
  - HAEMOGLOBIN DECREASED [None]
  - HERPES ZOSTER [None]
  - NEUTROPENIA [None]
  - PNEUMOCOCCAL BACTERAEMIA [None]
  - PNEUMONIA PNEUMOCOCCAL [None]
  - WHITE BLOOD CELL COUNT DECREASED [None]
